FAERS Safety Report 4521036-6 (Version None)
Quarter: 2004Q4

REPORT INFORMATION
  Report Type: 
  Country: None (occurrence: None)
  Receive Date: 20041208
  Receipt Date: 20030825
  Transmission Date: 20050328
  Serious: Yes (Hospitalization)
  Sender: FDA-Public Use
  Company Number: 200313205FR

PATIENT
  Age: 64 Year
  Sex: Female
  Weight: 50 kg

DRUGS (11)
  1. CLAFORAN [Suspect]
     Indication: MENINGITIS
     Route: 042
     Dates: start: 20030617, end: 20030620
  2. CLAMOXYL [Suspect]
     Indication: MENINGITIS
     Route: 042
     Dates: start: 20030617, end: 20030623
  3. ZOVIRAX [Suspect]
     Indication: MENINGITIS
     Route: 042
     Dates: start: 20030617, end: 20030622
  4. NARAMIG [Concomitant]
     Indication: MIGRAINE
     Route: 048
  5. HYZAAR [Concomitant]
     Indication: HYPERTENSION
     Route: 048
  6. DEROXAT [Concomitant]
     Route: 048
  7. ACUPAN [Concomitant]
     Dosage: DOSE UNIT: UNITS
     Route: 042
     Dates: start: 20030617, end: 20030622
  8. MOPRAL [Concomitant]
     Route: 042
     Dates: start: 20030620, end: 20030622
  9. STILNOX [Concomitant]
     Route: 048
  10. DOLIPRANE [Concomitant]
     Route: 048
     Dates: start: 20030617, end: 20030620
  11. TOPALGIC [Concomitant]
     Route: 048
     Dates: start: 20030621, end: 20030623

REACTIONS (5)
  - DRUG INTERACTION [None]
  - HALLUCINATION, VISUAL [None]
  - NEUROTOXICITY [None]
  - RENAL FAILURE ACUTE [None]
  - THERAPEUTIC AGENT TOXICITY [None]
